FAERS Safety Report 9125119 (Version 1)
Quarter: 2013Q1

REPORT INFORMATION
  Report Type: Spontaneous
  Country: US (occurrence: US)
  Receive Date: 20130117
  Receipt Date: 20130117
  Transmission Date: 20140127
  Serious: Yes (Hospitalization, Other)
  Sender: FDA-Public Use
  Company Number: US-PFIZER INC-2013016727

PATIENT
  Age: 86 Year
  Sex: Female

DRUGS (3)
  1. LEVOXYL [Suspect]
     Dosage: UNK
  2. LEVOTHYROXINE SODIUM [Suspect]
     Dosage: UNK
  3. SYNTHROID [Suspect]
     Dosage: UNK

REACTIONS (1)
  - Haemolytic anaemia [Unknown]
